FAERS Safety Report 9400229 (Version 1)
Quarter: 2013Q3

REPORT INFORMATION
  Report Type: Spontaneous
  Country: US (occurrence: US)
  Receive Date: 20130715
  Receipt Date: 20130715
  Transmission Date: 20140515
  Serious: Yes (Other)
  Sender: FDA-Public Use
  Company Number: US-BRISTOL-MYERS SQUIBB COMPANY-19096163

PATIENT
  Age: 39 Year
  Sex: Female

DRUGS (1)
  1. SPRYCEL [Suspect]
     Indication: PIGMENTATION DISORDER
     Dosage: DOSE DRECRASED TO ONCE EVERY THREE DAYS
     Route: 048

REACTIONS (2)
  - Ankle operation [Unknown]
  - Off label use [Unknown]
